FAERS Safety Report 7454240-8 (Version None)
Quarter: 2011Q2

REPORT INFORMATION
  Report Type: 
  Country: None (occurrence: None)
  Receive Date: 20110503
  Receipt Date: 20110421
  Transmission Date: 20111010
  Serious: Yes (Other)
  Sender: FDA-Public Use
  Company Number: US-US-EMD SERONO, INC.-7011820

PATIENT
  Sex: Male
  Weight: 88 kg

DRUGS (2)
  1. STEROIDS [Suspect]
     Indication: MULTIPLE SCLEROSIS
     Route: 048
     Dates: end: 20070101
  2. REBIF [Suspect]
     Indication: MULTIPLE SCLEROSIS
     Dates: start: 20020101, end: 20070101

REACTIONS (2)
  - DIABETES MELLITUS [None]
  - FALL [None]
